FAERS Safety Report 25314299 (Version 1)
Quarter: 2025Q2

REPORT INFORMATION
  Report Type: Spontaneous
  Country: US (occurrence: None)
  Receive Date: 20250514
  Receipt Date: 20250514
  Transmission Date: 20250716
  Serious: Yes (Hospitalization)
  Sender: FDA-CTU
  Company Number: None

PATIENT
  Sex: Female

DRUGS (11)
  1. ORENCIA [Suspect]
     Active Substance: ABATACEPT
     Indication: Rheumatoid arthritis
     Dates: start: 20220107
  2. ALLEGRA TAB 60MG [Concomitant]
  3. ASPIRIN LOW CHW 81 MG [Concomitant]
  4. BUPROPION TAB 100MG SR [Concomitant]
  5. CALCIUM [Concomitant]
     Active Substance: CALCIUM
  6. FOLIC ACID TAB [Concomitant]
  7. LIPITOR TAB 10MG [Concomitant]
  8. METHOTREXATE [Concomitant]
     Active Substance: METHOTREXATE
  9. PEPCID TAB 20MG [Concomitant]
  10. POT CL MICRO TAB 20MEQ CR [Concomitant]
  11. PREDNISONE PAK 5MG [Concomitant]

REACTIONS (4)
  - Loss of personal independence in daily activities [None]
  - Pain [None]
  - Pneumonia [None]
  - Therapy non-responder [None]
